FAERS Safety Report 11925660 (Version 1)
Quarter: 2016Q1

REPORT INFORMATION
  Report Type: Spontaneous
  Country: CN (occurrence: CN)
  Receive Date: 20160118
  Receipt Date: 20160118
  Transmission Date: 20160526
  Serious: Yes (Hospitalization, Other)
  Sender: FDA-Public Use
  Company Number: PHHY2016CN003707

PATIENT
  Age: 24 Year
  Sex: Male
  Weight: 51 kg

DRUGS (6)
  1. SODIUM BICARBONATE. [Concomitant]
     Active Substance: SODIUM BICARBONATE
     Indication: URINE ALKALINISATION THERAPY
     Dosage: UNK
     Route: 065
  2. ESSENTIALE [Concomitant]
     Indication: PROPHYLAXIS
     Dosage: UNK
     Route: 065
  3. ESSENTIALE [Concomitant]
     Indication: ENZYME LEVEL INCREASED
  4. SEBIVO [Suspect]
     Active Substance: TELBIVUDINE
     Indication: CHRONIC HEPATITIS B
     Dosage: ONE TABLET, QD
     Route: 048
     Dates: start: 20150701, end: 20150730
  5. COMPOUND GLYCYRRHIZA [Concomitant]
     Indication: PRODUCT USED FOR UNKNOWN INDICATION
     Dosage: UNK
     Route: 065
  6. SODIUM BICARBONATE. [Concomitant]
     Active Substance: SODIUM BICARBONATE
     Indication: FLUID REPLACEMENT

REACTIONS (3)
  - Pain [Recovering/Resolving]
  - Blood creatine phosphokinase increased [Recovering/Resolving]
  - Myalgia [Recovering/Resolving]

NARRATIVE: CASE EVENT DATE: 20150720
